FAERS Safety Report 7112393-5 (Version None)
Quarter: 2010Q4

REPORT INFORMATION
  Report Type: 
  Country: None (occurrence: None)
  Receive Date: 20101119
  Receipt Date: 20101011
  Transmission Date: 20110411
  Serious: No
  Sender: FDA-Public Use
  Company Number: A0885881A

PATIENT
  Age: 61 Year
  Sex: Male

DRUGS (8)
  1. AVODART [Suspect]
     Dosage: .5MG PER DAY
     Route: 048
     Dates: start: 20090401, end: 20100401
  2. VERAPAMIL [Concomitant]
  3. METOPROLOL [Concomitant]
  4. SPIRONOLACTONE [Concomitant]
  5. DIPENTUM [Concomitant]
  6. PRAVASTATIN [Concomitant]
  7. NEXIUM [Concomitant]
  8. XANAX [Concomitant]

REACTIONS (1)
  - ERECTILE DYSFUNCTION [None]
